FAERS Safety Report 19650956 (Version 4)
Quarter: 2021Q3

REPORT INFORMATION
  Report Type: Spontaneous
  Country: MX (occurrence: MX)
  Receive Date: 20210803
  Receipt Date: 20210820
  Transmission Date: 20211014
  Serious: Yes (Hospitalization, Other)
  Sender: FDA-Public Use
  Company Number: MX-STRIDES ARCOLAB LIMITED-2021SP025879

PATIENT
  Age: 56 Year
  Sex: Male

DRUGS (7)
  1. GABAPENTIN. [Suspect]
     Active Substance: GABAPENTIN
     Indication: SPINAL STENOSIS
     Dosage: 300 MILLIGRAM EVERY 8 HOURS
     Route: 065
     Dates: start: 201907, end: 201911
  2. GABAPENTIN. [Suspect]
     Active Substance: GABAPENTIN
     Dosage: 800 MILLIGRAM
     Route: 065
  3. TRAMADOL/PARACETAMOL [Concomitant]
     Active Substance: ACETAMINOPHEN\TRAMADOL
     Dosage: TRAMADOL/PARACETAMOL: 112.5 MG/975 MG
     Route: 065
     Dates: start: 20191112, end: 20191126
  4. GABAPENTIN. [Suspect]
     Active Substance: GABAPENTIN
     Dosage: 300 MILLIGRAM (2?2?2)
     Route: 065
     Dates: start: 20191112, end: 20191126
  5. TRAMADOL/PARACETAMOL [Concomitant]
     Active Substance: ACETAMINOPHEN\TRAMADOL
     Dosage: TRAMADOL/PARACETAMOL: 37.5 MG/325 MG (1?1?1)
     Route: 065
  6. GABAPENTIN. [Suspect]
     Active Substance: GABAPENTIN
     Dosage: UNK, 1 TOTAL A DOSE OF GABAPENTIN
     Route: 065
  7. TRAMADOL/PARACETAMOL [Concomitant]
     Active Substance: ACETAMINOPHEN\TRAMADOL
     Indication: SPINAL STENOSIS
     Dosage: TRAMADOL/PARACETAMOL: 18.7 MG/162.5 MG
     Route: 065
     Dates: start: 201907, end: 201911

REACTIONS (4)
  - Hepatotoxicity [Recovered/Resolved]
  - Hepatitis acute [Recovered/Resolved]
  - Liver injury [Recovered/Resolved]
  - Drug ineffective for unapproved indication [Unknown]

NARRATIVE: CASE EVENT DATE: 201907
